FAERS Safety Report 7741447-5 (Version None)
Quarter: 2011Q3

REPORT INFORMATION
  Report Type: 
  Country: None (occurrence: None)
  Receive Date: 20110909
  Receipt Date: 20110901
  Transmission Date: 20111222
  Serious: Yes (Hospitalization, Other)
  Sender: FDA-Public Use
  Company Number: US-AMGEN-USASP2011044969

PATIENT
  Age: 46 Year
  Sex: Male

DRUGS (1)
  1. ENBREL [Suspect]
     Indication: PSORIATIC ARTHROPATHY
     Dosage: 50 MG, QWK
     Dates: start: 20090301, end: 20110401

REACTIONS (5)
  - SKIN GRAFT [None]
  - ARTHRALGIA [None]
  - IMPAIRED HEALING [None]
  - SARCOMA [None]
  - SKIN GRAFT REJECTION [None]
